FAERS Safety Report 15631107 (Version 1)
Quarter: 2018Q4

REPORT INFORMATION
  Report Type: Spontaneous
  Country: US (occurrence: US)
  Receive Date: 20181119
  Receipt Date: 20181119
  Transmission Date: 20190205
  Serious: No
  Sender: FDA-Public Use
  Company Number: US-HETERO CORPORATE-HET2018US01347

PATIENT
  Sex: Female

DRUGS (2)
  1. IRBESARTAN. [Suspect]
     Active Substance: IRBESARTAN
     Indication: ARTHRALGIA
  2. IRBESARTAN. [Suspect]
     Active Substance: IRBESARTAN
     Indication: NEUROPATHY PERIPHERAL
     Dosage: 4-5 PILLS A DAY
     Route: 065

REACTIONS (3)
  - Rash generalised [Unknown]
  - Drug ineffective [Unknown]
  - Off label use [Unknown]
